FAERS Safety Report 12965446 (Version 1)
Quarter: 2016Q4

REPORT INFORMATION
  Report Type: Spontaneous
  Country: US (occurrence: US)
  Receive Date: 20161122
  Receipt Date: 20161122
  Transmission Date: 20170207
  Serious: No
  Sender: FDA-Public Use
  Company Number: US-BAYER-2016-223227

PATIENT
  Age: 11 Year
  Sex: Female
  Weight: 25.4 kg

DRUGS (3)
  1. MIRALAX [Suspect]
     Active Substance: POLYETHYLENE GLYCOL 3350
     Dosage: 1 DF, UNK
     Route: 048
     Dates: start: 20161105, end: 20161117
  2. LEVOXYL [Concomitant]
     Active Substance: LEVOTHYROXINE SODIUM
  3. VYVANSE [Concomitant]
     Active Substance: LISDEXAMFETAMINE DIMESYLATE

REACTIONS (1)
  - Product use issue [None]

NARRATIVE: CASE EVENT DATE: 20161105
